FAERS Safety Report 5772217-5 (Version None)
Quarter: 2008Q2

REPORT INFORMATION
  Report Type: 
  Country: None (occurrence: None)
  Receive Date: 20080613
  Receipt Date: 20080603
  Transmission Date: 20081010
  Serious: Yes (Hospitalization)
  Sender: FDA-Public Use
  Company Number: GB-PURDUE-GBR_2008_0004096

PATIENT
  Age: 47 Year
  Sex: Female

DRUGS (5)
  1. OXYCODONE HYDROCHLORIDE [Suspect]
     Indication: OVARIAN CANCER
     Dosage: 20 MG, UNK
     Route: 058
  2. CYCLIZINE [Suspect]
     Indication: VOMITING
     Dosage: 150 MG, UNK
     Route: 058
  3. FLUOXETINE HCL [Suspect]
     Indication: DEPRESSION
     Dosage: 20 MG, UNK
     Route: 048
  4. HALOPERIDOL [Suspect]
     Indication: DRUG USE FOR UNKNOWN INDICATION
     Dosage: 2.5 MG, UNK
     Route: 058
  5. LEVOMEPROMAZINE [Suspect]
     Indication: DRUG USE FOR UNKNOWN INDICATION
     Dosage: 6 MG, BID
     Route: 048

REACTIONS (2)
  - AKATHISIA [None]
  - DRUG INTERACTION [None]
